FAERS Safety Report 21903731 (Version 2)
Quarter: 2023Q1

REPORT INFORMATION
  Report Type: Report from Study
  Country: FR (occurrence: None)
  Receive Date: 20230124
  Receipt Date: 20230222
  Transmission Date: 20230418
  Serious: Yes (Death)
  Sender: FDA-Public Use
  Company Number: FR-Eisai Medical Research-EC-2023-132525

PATIENT
  Age: 66 Year
  Sex: Male
  Weight: 90 kg

DRUGS (10)
  1. LENVATINIB [Suspect]
     Active Substance: LENVATINIB
     Indication: Hormone-refractory prostate cancer
     Route: 048
     Dates: start: 20220523, end: 20220610
  2. LENVATINIB [Suspect]
     Active Substance: LENVATINIB
     Indication: Prostate cancer metastatic
  3. PEMBROLIZUMAB [Suspect]
     Active Substance: PEMBROLIZUMAB
     Indication: Hormone-refractory prostate cancer
     Route: 041
     Dates: start: 20220523, end: 20220613
  4. PEMBROLIZUMAB [Suspect]
     Active Substance: PEMBROLIZUMAB
     Indication: Prostate cancer metastatic
  5. TRAMADOL HYDROCHLORIDE [Concomitant]
     Active Substance: TRAMADOL HYDROCHLORIDE
     Dates: start: 20220523
  6. DOLIPRANE [Concomitant]
     Active Substance: ACETAMINOPHEN
     Dates: start: 20220503
  7. ACETAMINOPHEN\CODEINE PHOSPHATE [Concomitant]
     Active Substance: ACETAMINOPHEN\CODEINE PHOSPHATE
     Dates: start: 20220503
  8. CALCIUM PHOSPHATE, DIBASIC, ANHYDROUS\MAGNESIUM GLYCEROPHOSPHATE\PHOSP [Concomitant]
     Active Substance: CALCIUM PHOSPHATE, DIBASIC, ANHYDROUS\MAGNESIUM GLYCEROPHOSPHATE\PHOSPHORIC ACID\SODIUM PHOSPHATE, D
     Dates: start: 20220523
  9. LERCANIDIPINE [Concomitant]
     Active Substance: LERCANIDIPINE
     Dates: start: 20220531
  10. DIETARY SUPPLEMENT [Concomitant]
     Active Substance: DIETARY SUPPLEMENT
     Dates: start: 20220607

REACTIONS (1)
  - Death [Fatal]

NARRATIVE: CASE EVENT DATE: 20220909
